FAERS Safety Report 23653241 (Version 1)
Quarter: 2024Q1

REPORT INFORMATION
  Report Type: Spontaneous
  Country: US (occurrence: US)
  Receive Date: 20240320
  Receipt Date: 20240320
  Transmission Date: 20240410
  Serious: Yes (Hospitalization)
  Sender: FDA-Public Use
  Company Number: US-GTI-000182

PATIENT
  Age: 13 Year
  Sex: Male

DRUGS (24)
  1. PREDNISONE [Suspect]
     Active Substance: PREDNISONE
     Indication: Clostridium difficile colitis
     Route: 065
  2. PREDNISONE [Suspect]
     Active Substance: PREDNISONE
     Indication: Colitis ulcerative
     Route: 065
  3. PREDNISONE [Suspect]
     Active Substance: PREDNISONE
     Indication: Cytomegalovirus colitis
     Route: 065
  4. PREDNISONE [Suspect]
     Active Substance: PREDNISONE
     Indication: Clostridium difficile colitis
     Route: 048
  5. PREDNISONE [Suspect]
     Active Substance: PREDNISONE
     Indication: Colitis ulcerative
     Route: 048
  6. PREDNISONE [Suspect]
     Active Substance: PREDNISONE
     Indication: Cytomegalovirus colitis
     Route: 048
  7. PREDNISONE [Suspect]
     Active Substance: PREDNISONE
     Indication: Clostridium difficile colitis
     Route: 048
  8. PREDNISONE [Suspect]
     Active Substance: PREDNISONE
     Indication: Colitis ulcerative
     Route: 048
  9. PREDNISONE [Suspect]
     Active Substance: PREDNISONE
     Indication: Cytomegalovirus colitis
     Route: 048
  10. USTEKINUMAB [Suspect]
     Active Substance: USTEKINUMAB
     Indication: Clostridium difficile colitis
     Route: 042
  11. USTEKINUMAB [Suspect]
     Active Substance: USTEKINUMAB
     Indication: Clostridium difficile colitis
     Route: 058
  12. UPADACITINIB [Suspect]
     Active Substance: UPADACITINIB
     Indication: Colitis ulcerative
     Route: 065
  13. UPADACITINIB [Suspect]
     Active Substance: UPADACITINIB
     Indication: Cytomegalovirus colitis
     Route: 065
  14. UPADACITINIB [Suspect]
     Active Substance: UPADACITINIB
     Indication: Colitis ulcerative
     Route: 065
  15. UPADACITINIB [Suspect]
     Active Substance: UPADACITINIB
     Indication: Cytomegalovirus colitis
     Route: 065
  16. METHYLPREDNISOLONE [Suspect]
     Active Substance: METHYLPREDNISOLONE
     Indication: Colitis ulcerative
     Route: 042
  17. UPADACITINIB [Suspect]
     Active Substance: UPADACITINIB
     Indication: Colitis ulcerative
     Route: 065
  18. UPADACITINIB [Suspect]
     Active Substance: UPADACITINIB
     Indication: Cytomegalovirus colitis
     Route: 065
  19. GANCICLOVIR [Suspect]
     Active Substance: GANCICLOVIR
     Indication: Cytomegalovirus colitis
     Route: 042
  20. VANCOMYCIN [Suspect]
     Active Substance: VANCOMYCIN
     Indication: Clostridium difficile colitis
     Route: 065
  21. INFLIXIMAB [Suspect]
     Active Substance: INFLIXIMAB
     Indication: Clostridium difficile colitis
     Route: 065
  22. METHOTREXATE [Suspect]
     Active Substance: METHOTREXATE
     Indication: Clostridium difficile colitis
     Route: 065
  23. VALGANCICLOVIR [Suspect]
     Active Substance: VALGANCICLOVIR
     Indication: Cytomegalovirus colitis
     Route: 048
  24. VEDOLIZUMAB [Suspect]
     Active Substance: VEDOLIZUMAB
     Indication: Colitis ulcerative
     Route: 065

REACTIONS (19)
  - Cytomegalovirus colitis [Recovered/Resolved]
  - Haematochezia [Recovered/Resolved]
  - C-reactive protein increased [Recovered/Resolved]
  - Faecal calprotectin increased [Recovered/Resolved]
  - Weight decreased [Recovered/Resolved]
  - Decreased appetite [Recovered/Resolved]
  - Lymphocytosis [Unknown]
  - Hypoalbuminaemia [Not Recovered/Not Resolved]
  - Alanine aminotransferase increased [Recovered/Resolved]
  - Cytomegalovirus infection reactivation [Recovered/Resolved]
  - Colitis ulcerative [Recovered/Resolved]
  - Condition aggravated [Recovered/Resolved]
  - Disease progression [Recovered/Resolved]
  - Drug ineffective [Unknown]
  - Multiple-drug resistance [Unknown]
  - Therapy non-responder [Unknown]
  - White blood cell count increased [Unknown]
  - Neutrophilia [Unknown]
  - Rectal haemorrhage [Unknown]
